FAERS Safety Report 9228911 (Version 1)
Quarter: 2013Q2

REPORT INFORMATION
  Report Type: Spontaneous
  Country: US (occurrence: US)
  Receive Date: 20130412
  Receipt Date: 20130412
  Transmission Date: 20140414
  Serious: Yes (Other)
  Sender: FDA-Public Use
  Company Number: US-US-EMD SERONO, INC.-7163329

PATIENT
  Age: 33 Year
  Sex: Female

DRUGS (3)
  1. REBIF [Suspect]
     Indication: MULTIPLE SCLEROSIS
     Route: 058
     Dates: start: 20050923, end: 20080917
  2. REBIF [Suspect]
     Route: 058
     Dates: start: 20100512
  3. MARIJUANA [Concomitant]
     Indication: PAIN IN EXTREMITY

REACTIONS (9)
  - Gait disturbance [Unknown]
  - Depression [Not Recovered/Not Resolved]
  - Optic neuritis [Recovering/Resolving]
  - Bladder sphincter atony [Recovering/Resolving]
  - Road traffic accident [Unknown]
  - Procedural pain [Unknown]
  - Muscular weakness [Unknown]
  - Muscular weakness [Unknown]
  - Gait disturbance [Unknown]
